FAERS Safety Report 9090608 (Version 1)
Quarter: 2013Q1

REPORT INFORMATION
  Report Type: Report from Study
  Country: US (occurrence: US)
  Receive Date: 20130201
  Receipt Date: 20130201
  Transmission Date: 20140127
  Serious: No
  Sender: FDA-Public Use
  Company Number: US-ABBOTT-12P-163-1018383-00

PATIENT
  Age: 66 Year
  Sex: Male

DRUGS (8)
  1. HUMIRA [Suspect]
     Indication: RHEUMATOID ARTHRITIS
     Dates: start: 2008
  2. PREDNISONE [Concomitant]
     Indication: PRODUCT USED FOR UNKNOWN INDICATION
  3. HYDROXYCHLOR [Concomitant]
     Indication: PRODUCT USED FOR UNKNOWN INDICATION
  4. ARAVA [Concomitant]
     Indication: PRODUCT USED FOR UNKNOWN INDICATION
  5. DIGOXIN [Concomitant]
     Indication: PRODUCT USED FOR UNKNOWN INDICATION
  6. ATROPINE [Concomitant]
     Indication: PRODUCT USED FOR UNKNOWN INDICATION
  7. ALENDRONATE [Concomitant]
     Indication: PRODUCT USED FOR UNKNOWN INDICATION
  8. LIPITOR [Concomitant]
     Indication: PRODUCT USED FOR UNKNOWN INDICATION

REACTIONS (1)
  - Injection site pain [Recovering/Resolving]
